FAERS Safety Report 9563977 (Version 3)
Quarter: 2014Q2

REPORT INFORMATION
  Report Type: Report from Study
  Country: DE (occurrence: DE)
  Receive Date: 20130928
  Receipt Date: 20140619
  Transmission Date: 20141212
  Serious: Yes (Hospitalization)
  Sender: FDA-Public Use
  Company Number: DE-009507513-1309DEU013148

PATIENT
  Age: 26 Year
  Sex: Female

DRUGS (6)
  1. BOCEPREVIR [Suspect]
     Indication: CHRONIC HEPATITIS C
     Dosage: UNK
     Route: 065
     Dates: start: 20121113
  2. RIBAVIRIN [Suspect]
     Indication: CHRONIC HEPATITIS C
     Dosage: DOSE,FORM,ROUTE,FREQUENCY NOT REPORTED
  3. RIBAVIRIN [Suspect]
     Dosage: UNK
     Dates: start: 20121113
  4. PEGINTERFERON ALFA-2A [Suspect]
     Indication: CHRONIC HEPATITIS C
     Dosage: 180 MICROGRAM, FORM UNSPECIFIED
     Route: 058
     Dates: start: 20120907, end: 20120911
  5. PEGINTERFERON ALFA-2A [Suspect]
     Dosage: UNK
     Dates: start: 20121113, end: 20130131
  6. TELAPREVIR [Suspect]
     Indication: CHRONIC HEPATITIS C
     Dosage: DOSE,FORM,ROUTE,FREQUENCY NOT REPORTED
     Route: 065

REACTIONS (4)
  - Alanine aminotransferase increased [Not Recovered/Not Resolved]
  - Rash [Recovered/Resolved]
  - Skin disorder [Recovered/Resolved]
  - Liver function test abnormal [Recovered/Resolved]
